FAERS Safety Report 21023578 (Version 2)
Quarter: 2022Q3

REPORT INFORMATION
  Report Type: Report from Study
  Country: AU (occurrence: AU)
  Receive Date: 20220629
  Receipt Date: 20220711
  Transmission Date: 20221027
  Serious: Yes (Hospitalization)
  Sender: FDA-Public Use
  Company Number: AU-BRISTOL-MYERS SQUIBB COMPANY-2022-061801

PATIENT
  Age: 76 Year
  Sex: Female

DRUGS (20)
  1. NIVOLUMAB [Suspect]
     Active Substance: NIVOLUMAB
     Indication: Genital neoplasm malignant female
     Route: 065
     Dates: end: 20220615
  2. IPILIMUMAB [Suspect]
     Active Substance: IPILIMUMAB
     Indication: Genital neoplasm malignant female
     Route: 065
     Dates: end: 20220615
  3. DEXAMETHASONE [Concomitant]
     Active Substance: DEXAMETHASONE
     Indication: Nausea
     Route: 065
     Dates: start: 202204
  4. DEXAMETHASONE [Concomitant]
     Active Substance: DEXAMETHASONE
     Indication: Pain
  5. OXYCODONE [Concomitant]
     Active Substance: OXYCODONE
     Indication: Pain
     Route: 065
     Dates: start: 202204
  6. ACETAMINOPHEN [Concomitant]
     Active Substance: ACETAMINOPHEN
     Indication: Product used for unknown indication
     Dosage: FREQUENCY: QID PRN
     Route: 065
     Dates: start: 20220623
  7. APIXABAN [Concomitant]
     Active Substance: APIXABAN
     Indication: Pulmonary embolism
     Dosage: FREQUENCY: BD
     Dates: start: 20220621
  8. SERTRALINE [Concomitant]
     Active Substance: SERTRALINE HYDROCHLORIDE
     Indication: Depression
     Dosage: FREQUENCY: HALF TABLET DAILY?STARTED 20 YEARS AGO
  9. CRESTOR [Concomitant]
     Active Substance: ROSUVASTATIN CALCIUM
     Indication: Hypercholesterolaemia
     Dosage: FREQUENCY: HALF TABLET DAILY
     Dates: start: 2021
  10. NALOXONE HYDROCHLORIDE\OXYCODONE HYDROCHLORIDE [Concomitant]
     Active Substance: NALOXONE HYDROCHLORIDE\OXYCODONE HYDROCHLORIDE
     Indication: Pain
     Dosage: DOSE: 20/10 TABLET MANE. 15/7.5MG NOCTE.
     Route: 065
     Dates: start: 202201
  11. NALOXONE HYDROCHLORIDE\OXYCODONE HYDROCHLORIDE [Concomitant]
     Active Substance: NALOXONE HYDROCHLORIDE\OXYCODONE HYDROCHLORIDE
     Dosage: DOSE: INCREASED TO 30/15 BD
     Route: 065
     Dates: start: 20220623
  12. PREGABALIN [Concomitant]
     Active Substance: PREGABALIN
     Indication: Pain
     Dosage: FREQUENCY: BD
     Route: 065
     Dates: start: 202201
  13. ONDANSETRON [Concomitant]
     Active Substance: ONDANSETRON
     Indication: Nausea
     Dosage: FREQUENCY: PRN
     Route: 060
     Dates: start: 202204
  14. METOCLOPRAMIDE [Concomitant]
     Active Substance: METOCLOPRAMIDE
     Indication: Nausea
     Dosage: FREQUENCY: PRN
     Route: 065
     Dates: start: 202204
  15. CLONAZEPAM [Concomitant]
     Active Substance: CLONAZEPAM
     Indication: Anxiety
     Dosage: DOSE: 2.5MG/1ML?FREQUENCY: TAKE TWO TO THREE DROPS ORALLY AT NIGHT
     Dates: start: 202204
  16. PANTOPRAZOLE SODIUM [Concomitant]
     Active Substance: PANTOPRAZOLE SODIUM
     Indication: Gastritis
     Route: 065
     Dates: start: 202204
  17. MAGNESIUM [Concomitant]
     Active Substance: MAGNESIUM
     Indication: Hypomagnesaemia
     Route: 065
     Dates: start: 202201
  18. ACTONEL [Concomitant]
     Active Substance: RISEDRONATE SODIUM
     Indication: Osteoporosis
     Route: 065
     Dates: start: 2020
  19. coloxyl and senna [Concomitant]
     Indication: Constipation
     Dosage: 2 TABLETS BD FOR PRN
     Route: 065
     Dates: start: 20220622
  20. DIAZEPAM [Concomitant]
     Active Substance: DIAZEPAM
     Indication: Anxiety
     Dosage: FREQUENCY: NOCTE PRN
     Route: 065
     Dates: start: 202204

REACTIONS (5)
  - Abdominal pain lower [Recovered/Resolved]
  - Pyrexia [Not Recovered/Not Resolved]
  - Dyspnoea [Not Recovered/Not Resolved]
  - Swollen tongue [Not Recovered/Not Resolved]
  - Condition aggravated [Not Recovered/Not Resolved]

NARRATIVE: CASE EVENT DATE: 20220620
